FAERS Safety Report 18575148 (Version 1)
Quarter: 2020Q4

REPORT INFORMATION
  Report Type: Spontaneous
  Country: US (occurrence: US)
  Receive Date: 20201202
  Receipt Date: 20201202
  Transmission Date: 20210114
  Serious: Yes (Hospitalization)
  Sender: FDA-Public Use
  Company Number: None

PATIENT
  Age: 69 Year
  Sex: Male
  Weight: 75.3 kg

DRUGS (1)
  1. GABAPENTIN (GABAPENTIN 100MG CAP) [Suspect]
     Active Substance: GABAPENTIN
     Indication: DIABETIC NEUROPATHY
     Route: 048
     Dates: start: 20180726, end: 20200128

REACTIONS (5)
  - Seizure [None]
  - Dyskinesia [None]
  - Dialysis [None]
  - Myoclonus [None]
  - Asterixis [None]

NARRATIVE: CASE EVENT DATE: 20200128
